FAERS Safety Report 9135467 (Version 2)
Quarter: 2013Q2

REPORT INFORMATION
  Report Type: Spontaneous
  Country: NO (occurrence: NO)
  Receive Date: 20130304
  Receipt Date: 20130410
  Transmission Date: 20140414
  Serious: Yes (Life-Threatening, Hospitalization)
  Sender: FDA-Public Use
  Company Number: PHHY2013NO020295

PATIENT
  Age: 52 Year
  Sex: Male

DRUGS (3)
  1. OXALIPLATIN [Suspect]
     Indication: COLON CANCER
     Dosage: 85 MG/M2
  2. FLUOROURACIL [Concomitant]
     Indication: COLON CANCER
     Dosage: 500 MG/M2, UNK
  3. FOLINIC ACID [Concomitant]
     Indication: COLON CANCER
     Dosage: 60 MG/M2, UNK

REACTIONS (13)
  - Fibrinolysis [Recovered/Resolved]
  - Thrombocytopenia [Recovered/Resolved]
  - Haemolysis [Recovered/Resolved]
  - Red blood cell schistocytes present [Recovered/Resolved]
  - Neutropenia [Recovered/Resolved]
  - Catheter site haemorrhage [Recovered/Resolved]
  - Rectal haemorrhage [Recovered/Resolved]
  - Haemoglobin decreased [Recovered/Resolved]
  - Coombs direct test positive [Recovered/Resolved]
  - Pyrexia [Recovered/Resolved]
  - Back pain [Recovered/Resolved]
  - Transaminases increased [Recovered/Resolved]
  - Blood bilirubin increased [Recovered/Resolved]
